FAERS Safety Report 9353082 (Version 1)
Quarter: 2013Q2

REPORT INFORMATION
  Report Type: Spontaneous
  Country: US (occurrence: US)
  Receive Date: 20130618
  Receipt Date: 20130618
  Transmission Date: 20140414
  Serious: Yes (Hospitalization)
  Sender: FDA-Public Use
  Company Number: US-MYLANLABS-2013S1012498

PATIENT
  Age: 81 Year
  Sex: Female

DRUGS (2)
  1. AZATHIOPRINE [Suspect]
     Indication: CROHN^S DISEASE
     Dosage: 75 MG/DAY
     Route: 048
  2. BUDESONIDE [Concomitant]
     Indication: CROHN^S DISEASE
     Dosage: 9 MG/DAY
     Route: 065

REACTIONS (2)
  - Drug hypersensitivity [Recovered/Resolved]
  - Neutrophilic dermatosis [Recovered/Resolved]
